FAERS Safety Report 24828981 (Version 1)
Quarter: 2025Q1

REPORT INFORMATION
  Report Type: Report from Study
  Country: US (occurrence: US)
  Receive Date: 20250110
  Receipt Date: 20250110
  Transmission Date: 20250409
  Serious: Yes (Other)
  Sender: ROCHE
  Company Number: US-ROCHE-3480436

PATIENT
  Age: 42 Year
  Sex: Female

DRUGS (4)
  1. XOLAIR PFS [Suspect]
     Active Substance: OMALIZUMAB
     Indication: Chronic spontaneous urticaria
     Dosage: INJECT 300MG SUBCUTANEOUSLY EVERY 4 WEEK(S)
     Route: 058
  2. XOLAIR PFS [Suspect]
     Active Substance: OMALIZUMAB
     Dosage: LAST DOSE WAS ON 27/NON/2023
     Route: 058
     Dates: start: 20230104
  3. XOLAIR PFS [Suspect]
     Active Substance: OMALIZUMAB
     Route: 058
  4. XOLAIR PFS [Suspect]
     Active Substance: OMALIZUMAB
     Route: 058

REACTIONS (5)
  - Nephrolithiasis [Unknown]
  - Renal mass [Unknown]
  - Renal cancer [Unknown]
  - Off label use [Unknown]
  - Renal cancer [Unknown]

NARRATIVE: CASE EVENT DATE: 20231127
